FAERS Safety Report 7012429-6 (Version None)
Quarter: 2010Q3

REPORT INFORMATION
  Report Type: 
  Country: None (occurrence: None)
  Receive Date: 20100924
  Receipt Date: 20100803
  Transmission Date: 20110219
  Serious: No
  Sender: FDA-Public Use
  Company Number: US-JNJFOC-20100800858

PATIENT
  Sex: Female

DRUGS (5)
  1. INVEGA [Suspect]
     Indication: BIPOLAR DISORDER
     Route: 048
  2. ABILIFY [Concomitant]
     Indication: BIPOLAR I DISORDER
     Route: 048
  3. TRILEPTAL [Concomitant]
     Indication: BIPOLAR I DISORDER
  4. DIABETES MEDICATION [Concomitant]
     Indication: DIABETES MELLITUS
     Route: 048
  5. CHOLESTEROL MEDICATION [Concomitant]
     Indication: BLOOD CHOLESTEROL ABNORMAL
     Route: 048

REACTIONS (1)
  - TREMOR [None]
